FAERS Safety Report 6772654-6 (Version None)
Quarter: 2010Q2

REPORT INFORMATION
  Report Type: 
  Country: None (occurrence: None)
  Receive Date: 20100616
  Receipt Date: 20090729
  Transmission Date: 20101027
  Serious: No
  Sender: FDA-Public Use
  Company Number: US-ASTRAZENECA-2009SE06307

PATIENT
  Sex: Female
  Weight: 55 kg

DRUGS (5)
  1. PULMICORT RESPULES [Suspect]
     Route: 055
     Dates: start: 20090712
  2. IPATROPIUM [Concomitant]
  3. PERFORMIST [Concomitant]
  4. BISOPROLOL [Concomitant]
  5. AZITHROMYCIN [Concomitant]

REACTIONS (2)
  - OEDEMA PERIPHERAL [None]
  - SWELLING FACE [None]
